FAERS Safety Report 7911292-6 (Version None)
Quarter: 2011Q4

REPORT INFORMATION
  Report Type: 
  Country: None (occurrence: None)
  Receive Date: 20111109
  Receipt Date: 20111025
  Transmission Date: 20120403
  Serious: Yes (Other)
  Sender: FDA-Public Use
  Company Number: DSA_45187_2011

PATIENT
  Age: 61 Year
  Sex: Female

DRUGS (16)
  1. TONIC FROM A MEDICAL HERBALIST [Concomitant]
  2. SIMVASTATIN [Concomitant]
  3. INDAPAMIDE [Concomitant]
  4. RAMIPRIL [Suspect]
     Indication: BLOOD PRESSURE
     Dosage: (0.75MG DAILY), (1/2 TABLET DAILY), (INCREASED TO 2.5MG; UNKNOWN)
     Dates: start: 20101206, end: 20101216
  5. RAMIPRIL [Suspect]
     Indication: BLOOD PRESSURE
     Dosage: (0.75MG DAILY), (1/2 TABLET DAILY), (INCREASED TO 2.5MG; UNKNOWN)
     Dates: start: 20101118, end: 20101101
  6. RAMIPRIL [Suspect]
     Indication: BLOOD PRESSURE
     Dosage: (0.75MG DAILY), (1/2 TABLET DAILY), (INCREASED TO 2.5MG; UNKNOWN)
     Dates: start: 20101101, end: 20101205
  7. CHAPARRAL DANDELION BLEND [Concomitant]
  8. BETA BLOCKING AGENTS [Concomitant]
  9. BISOPROLOL FUMARATE [Suspect]
     Indication: PRODUCT USED FOR UNKNOWN INDICATION
     Dosage: (DF)
     Dates: start: 20101001, end: 20101006
  10. ALL OTHER THERAPEUTIC PRODUCTS [Concomitant]
  11. MEBEVERINE [Concomitant]
  12. DILTIAZEM HYDROCHLORIDE [Suspect]
     Indication: PRODUCT USED FOR UNKNOWN INDICATION
     Dosage: (200 MG QD ORAL), (DF)
     Route: 048
     Dates: start: 20101006, end: 20101104
  13. LOSARTAN [Concomitant]
  14. BENDROFLUMETHIAZIDE [Concomitant]
  15. SOTALOL HCL [Concomitant]
  16. ASPIRIN [Concomitant]

REACTIONS (10)
  - VERTIGO [None]
  - REACTION TO DRUG EXCIPIENTS [None]
  - VISUAL IMPAIRMENT [None]
  - DRUG INTOLERANCE [None]
  - NAUSEA [None]
  - BLOOD PRESSURE INCREASED [None]
  - HYPOAESTHESIA [None]
  - VISION BLURRED [None]
  - MIGRAINE WITH AURA [None]
  - DIZZINESS [None]
